FAERS Safety Report 18494480 (Version 4)
Quarter: 2021Q2

REPORT INFORMATION
  Report Type: Spontaneous
  Country: JP (occurrence: JP)
  Receive Date: 20201112
  Receipt Date: 20210423
  Transmission Date: 20210717
  Serious: Yes (Death, Other)
  Sender: FDA-Public Use
  Company Number: NVSJ2020JP011798

PATIENT
  Age: 81 Year
  Sex: Male
  Weight: 53 kg

DRUGS (11)
  1. ENTRESTO [Suspect]
     Active Substance: SACUBITRIL\VALSARTAN
     Indication: CARDIAC FAILURE CHRONIC
     Dosage: 50 MG
     Route: 048
     Dates: start: 20201002
  2. CARVEDILOL. [Suspect]
     Active Substance: CARVEDILOL
     Indication: CARDIAC FAILURE CHRONIC
     Dosage: 5 MG, BID
     Route: 065
     Dates: start: 20120712
  3. AZOSEMIDE [Concomitant]
     Active Substance: AZOSEMIDE
     Indication: CARDIAC FAILURE CHRONIC
     Dosage: 30 MG
     Route: 065
     Dates: start: 20191223
  4. SAMSCA [Concomitant]
     Active Substance: TOLVAPTAN
     Indication: CARDIAC FAILURE CHRONIC
     Dosage: 3.75 MG
     Route: 065
     Dates: start: 20200922
  5. BAYASPIRIN [Suspect]
     Active Substance: ASPIRIN
     Indication: ANGINA PECTORIS
     Dosage: 100 MG
     Route: 065
     Dates: start: 20120630
  6. LANSOPRAZOLE. [Concomitant]
     Active Substance: LANSOPRAZOLE
     Indication: PROPHYLAXIS AGAINST GASTROINTESTINAL ULCER
     Dosage: 15 MG
     Route: 065
     Dates: start: 20120704
  7. THYRADIN [Concomitant]
     Active Substance: LEVOTHYROXINE
     Indication: HYPOTHYROIDISM
     Dosage: 50 UG
     Route: 065
     Dates: start: 20200905
  8. ENTRESTO [Suspect]
     Active Substance: SACUBITRIL\VALSARTAN
     Dosage: 100 MG, BID
     Route: 048
     Dates: start: 20201015
  9. EFIENT [Suspect]
     Active Substance: PRASUGREL HYDROCHLORIDE
     Indication: ANGINA PECTORIS
     Dosage: 3.75 MG
     Route: 065
     Dates: start: 20200827
  10. ROZEREM [Concomitant]
     Active Substance: RAMELTEON
     Indication: INSOMNIA
     Dosage: 8 MG
     Route: 065
     Dates: start: 20200914
  11. ATORVASTATIN [Concomitant]
     Active Substance: ATORVASTATIN
     Indication: HYPERCHOLESTEROLAEMIA
     Dosage: 10 MG
     Route: 065
     Dates: start: 20130314

REACTIONS (7)
  - Sudden death [Fatal]
  - Acute pulmonary oedema [Recovered/Resolved]
  - Dyspnoea [Recovering/Resolving]
  - Blood pressure decreased [Recovering/Resolving]
  - Hypotension [Recovered/Resolved]
  - Occult blood positive [Unknown]
  - Abdominal pain [Recovering/Resolving]

NARRATIVE: CASE EVENT DATE: 20201005
